FAERS Safety Report 20075367 (Version 1)
Quarter: 2021Q4

REPORT INFORMATION
  Report Type: Spontaneous
  Country: PR (occurrence: PR)
  Receive Date: 20211116
  Receipt Date: 20211116
  Transmission Date: 20220303
  Serious: No
  Sender: FDA-Public Use
  Company Number: PR-ABBVIE-21K-131-4061909-00

PATIENT

DRUGS (1)
  1. RINVOQ [Suspect]
     Active Substance: UPADACITINIB
     Indication: Product used for unknown indication
     Route: 048

REACTIONS (1)
  - Acne [Unknown]
